FAERS Safety Report 19405783 (Version 1)
Quarter: 2021Q2

REPORT INFORMATION
  Report Type: Spontaneous
  Country: US (occurrence: US)
  Receive Date: 20210611
  Receipt Date: 20210611
  Transmission Date: 20210717
  Serious: No
  Sender: FDA-Public Use
  Company Number: US-SLATE RUN PHARMACEUTICALS-21US000519

PATIENT

DRUGS (2)
  1. POTASSIUM CHLORIDE EXTENDED?RELEASE USP (K?TAB) [Suspect]
     Active Substance: POTASSIUM CHLORIDE
     Dosage: 10 MILLIEQUIVALENT
     Route: 048
  2. POTASSIUM CHLORIDE EXTENDED?RELEASE USP (K?TAB) [Suspect]
     Active Substance: POTASSIUM CHLORIDE
     Indication: BLOOD POTASSIUM DECREASED
     Dosage: 20 MILLIEQUIVALENT, QID
     Route: 048

REACTIONS (1)
  - Product residue present [Not Recovered/Not Resolved]
